FAERS Safety Report 4493286-9 (Version None)
Quarter: 2004Q4

REPORT INFORMATION
  Report Type: 
  Country: None (occurrence: None)
  Receive Date: 20041102
  Receipt Date: 20041015
  Transmission Date: 20050328
  Serious: Yes (Other)
  Sender: FDA-Public Use
  Company Number: USA040670177

PATIENT
  Age: 64 Year
  Sex: Female
  Weight: 62 kg

DRUGS (5)
  1. HUMALOG [Suspect]
     Indication: DIABETES MELLITUS
     Dates: start: 20000101
  2. HUMULIN N [Suspect]
     Indication: DIABETES MELLITUS
     Dosage: 12 U DAY
     Dates: start: 20000101, end: 20040101
  3. HUMULIN R [Suspect]
     Indication: DIABETES MELLITUS
     Dates: start: 19860101, end: 19890101
  4. LANTUS [Concomitant]
  5. GLJUCOPHAGE (METFORMIN) [Concomitant]

REACTIONS (6)
  - BLOOD GLUCOSE INCREASED [None]
  - BODY HEIGHT DECREASED [None]
  - DIABETIC RETINOPATHY [None]
  - EYE INFECTION STAPHYLOCOCCAL [None]
  - RETINAL DISORDER [None]
  - VISUAL DISTURBANCE [None]
